FAERS Safety Report 4802296-0 (Version None)
Quarter: 2005Q4

REPORT INFORMATION
  Report Type: 
  Country: None (occurrence: None)
  Receive Date: 20051012
  Receipt Date: 20050930
  Transmission Date: 20060501
  Serious: Yes (Hospitalization, Other)
  Sender: FDA-Public Use
  Company Number: 2005112894

PATIENT
  Sex: Female
  Weight: 75.7507 kg

DRUGS (17)
  1. DETROL LA [Suspect]
     Indication: URINARY INCONTINENCE
     Dosage: 4 MG (4 MG, 1 IN 1 D) ORAL
     Route: 048
  2. ALL OTHER THERAPEUTIC PRODUCTS [Concomitant]
  3. HUMULIN 70/30 (INSULIN HUMAN INJECTION, ISOPHANE, INSULIN HUMAN ZINC S [Concomitant]
  4. FOSAMAX [Concomitant]
  5. EXTRA STRENGTH TYLENOL [Concomitant]
  6. FUROSEMIDE [Concomitant]
  7. ATENOLOL [Concomitant]
  8. KLOR-CON [Concomitant]
  9. LISINOPRIL [Concomitant]
  10. PRILOSEC [Concomitant]
  11. ARICEPT [Concomitant]
  12. ZYRTEC [Concomitant]
  13. MULTI-VITAMINS [Concomitant]
  14. ZOLOFT [Concomitant]
  15. VITAMIN E [Concomitant]
  16. VITAMIN B COMPLEX CAP [Concomitant]
  17. VITAMIN B-12 [Concomitant]

REACTIONS (9)
  - CATARACT [None]
  - CONDITION AGGRAVATED [None]
  - CONSTIPATION [None]
  - CYSTITIS [None]
  - INSOMNIA [None]
  - INTESTINAL OBSTRUCTION [None]
  - LOSS OF CONSCIOUSNESS [None]
  - MACULAR DEGENERATION [None]
  - URINARY INCONTINENCE [None]
